FAERS Safety Report 6187906-0 (Version None)
Quarter: 2009Q2

REPORT INFORMATION
  Report Type: 
  Country: None (occurrence: None)
  Receive Date: 20090511
  Receipt Date: 20090511
  Transmission Date: 20091009
  Serious: Yes (Other)
  Sender: FDA-Public Use
  Company Number: None

PATIENT
  Sex: Female
  Weight: 58.18 kg

DRUGS (16)
  1. SIMVASTATIN [Suspect]
     Dosage: 20MG TABLET 20 MG QHS ORAL
     Route: 048
     Dates: start: 20090225, end: 20090508
  2. ANKLE BRACE [Concomitant]
  3. CELEXA [Concomitant]
  4. CLINDAMYCIN HCL [Concomitant]
  5. CLOBETASOL GEL [Concomitant]
  6. CLOBETASOL SOLUTION [Concomitant]
  7. CLONAZEPAM [Concomitant]
  8. COLCHICINE [Concomitant]
  9. LAMICTAL [Concomitant]
  10. LITHIUM CARBONATE [Concomitant]
  11. METROGEL [Concomitant]
  12. PRILOSEC [Concomitant]
  13. RELPAX [Concomitant]
  14. SYNTHROID [Concomitant]
  15. TERAZOL 7 [Concomitant]
  16. TRETINOIN [Concomitant]

REACTIONS (1)
  - MYALGIA [None]
